FAERS Safety Report 5391809-9 (Version None)
Quarter: 2007Q3

REPORT INFORMATION
  Report Type: 
  Country: None (occurrence: None)
  Receive Date: 20070717
  Receipt Date: 20070703
  Transmission Date: 20080115
  Serious: Yes (Hospitalization, Other)
  Sender: FDA-Public Use
  Company Number: 02100-JPN-07-0301

PATIENT
  Age: 68 Year
  Sex: Male

DRUGS (11)
  1. CILOSTAZOL [Suspect]
     Indication: PLATELET AGGREGATION INHIBITION
     Dosage: 200 MG ORAL
     Route: 048
     Dates: start: 20070502, end: 20070621
  2. TICLOPIDINE HYDROCHLORIDE [Suspect]
     Indication: THROMBOSIS IN DEVICE
     Dosage: 200 MG ORAL
     Route: 048
     Dates: start: 20070403, end: 20070502
  3. FAMOTIDINE [Concomitant]
  4. ASPIRIN [Concomitant]
  5. ATORVASTATIN CALCIUM HYDRATE [Concomitant]
  6. METILDIGOXIN [Concomitant]
  7. ENALAPRIL MALEATE [Concomitant]
  8. FUROSEMIDE [Concomitant]
  9. CARVEDILOL [Concomitant]
  10. PRAVASTATIN SODIUM [Concomitant]
  11. TICLOPIDINE HYDROCHLORIDE [Concomitant]

REACTIONS (6)
  - ALANINE AMINOTRANSFERASE ABNORMAL [None]
  - ASPARTATE AMINOTRANSFERASE ABNORMAL [None]
  - HEPATIC FUNCTION ABNORMAL [None]
  - HYPERBILIRUBINAEMIA [None]
  - THROMBOSIS IN DEVICE [None]
  - URINE COLOUR ABNORMAL [None]
